FAERS Safety Report 5382713-0 (Version None)
Quarter: 2007Q3

REPORT INFORMATION
  Report Type: 
  Country: None (occurrence: None)
  Receive Date: 20070710
  Receipt Date: 20070702
  Transmission Date: 20080115
  Serious: Yes (Life-Threatening)
  Sender: FDA-Public Use
  Company Number: AU-ROCHE-504793

PATIENT
  Age: 17 Year
  Sex: Male
  Weight: 75 kg

DRUGS (3)
  1. ROACCUTANE [Suspect]
     Indication: ACNE
     Route: 048
  2. PREDNISOLONE [Concomitant]
  3. ANTIBIOTIC NOS [Concomitant]
     Dosage: THE PATIENT WAS TAKING VARIOUS ANTIBIOTICS.

REACTIONS (4)
  - CARDIOMYOPATHY [None]
  - DYSPNOEA [None]
  - NAUSEA [None]
  - VOMITING [None]
